FAERS Safety Report 5833937-7 (Version None)
Quarter: 2008Q3

REPORT INFORMATION
  Report Type: 
  Country: None (occurrence: None)
  Receive Date: 20080805
  Receipt Date: 20080804
  Transmission Date: 20090109
  Serious: Yes (Death)
  Sender: FDA-Public Use
  Company Number: B0531729A

PATIENT
  Age: 56 Year
  Sex: Female
  Weight: 51 kg

DRUGS (15)
  1. FLOLAN [Suspect]
     Indication: PULMONARY EMBOLISM
     Route: 042
     Dates: start: 20060426
  2. WARFARIN POTASSIUM [Concomitant]
     Route: 048
  3. FUROSEMIDE [Concomitant]
     Route: 048
  4. SPIRONOLACTONE [Concomitant]
     Route: 048
  5. TRACLEER [Concomitant]
     Route: 048
  6. VIAGRA [Concomitant]
     Route: 048
  7. ACARDI [Concomitant]
     Route: 048
  8. CEFAMEZIN [Concomitant]
  9. INOVAN [Concomitant]
  10. DIPRIVAN [Concomitant]
  11. PAZUCROSS [Concomitant]
  12. VANCOMYCIN HCL [Concomitant]
  13. HEPARIN [Concomitant]
  14. MIDAZOLAM HCL [Concomitant]
  15. BOSMIN [Concomitant]

REACTIONS (1)
  - CARDIAC FAILURE [None]
